FAERS Safety Report 9451086 (Version 1)
Quarter: 2013Q3

REPORT INFORMATION
  Report Type: Spontaneous
  Country: JP (occurrence: JP)
  Receive Date: 20130809
  Receipt Date: 20130809
  Transmission Date: 20140515
  Serious: Yes (Other)
  Sender: FDA-Public Use
  Company Number: JP-GILEAD-2013-0077985

PATIENT
  Age: 1 Year
  Sex: 0

DRUGS (5)
  1. AMBRISENTAN [Suspect]
     Indication: PULMONARY ARTERIAL HYPERTENSION
     Dosage: UNK
     Route: 048
     Dates: start: 201305
  2. ADCIRCA [Concomitant]
     Route: 048
  3. WARFARIN [Concomitant]
     Route: 048
  4. FUROSEMIDE [Concomitant]
     Route: 065
  5. BAKTAR [Concomitant]
     Route: 048

REACTIONS (1)
  - Therapeutic response decreased [Unknown]
